FAERS Safety Report 13514094 (Version 1)
Quarter: 2017Q2

REPORT INFORMATION
  Report Type: Spontaneous
  Country: US (occurrence: US)
  Receive Date: 20170504
  Receipt Date: 20170504
  Transmission Date: 20170830
  Serious: No
  Sender: FDA-Public Use
  Company Number: US-ABBVIE-16P-163-1685297-00

PATIENT

DRUGS (2)
  1. CREON [Suspect]
     Active Substance: PANCRELIPASE AMYLASE\PANCRELIPASE LIPASE\PANCRELIPASE PROTEASE
     Dosage: 2 CAPSULES AFTER EACH MEAL
     Route: 048
  2. CREON [Suspect]
     Active Substance: PANCRELIPASE AMYLASE\PANCRELIPASE LIPASE\PANCRELIPASE PROTEASE
     Indication: PANCREATITIS CHRONIC
     Route: 048

REACTIONS (8)
  - Faeces soft [Not Recovered/Not Resolved]
  - Abdominal pain upper [Unknown]
  - Defaecation urgency [Unknown]
  - Gastrointestinal sounds abnormal [Unknown]
  - Blood glucose increased [Unknown]
  - Liver function test increased [Unknown]
  - Emotional distress [Unknown]
  - Drug ineffective [Unknown]
